FAERS Safety Report 14404787 (Version 1)
Quarter: 2018Q1

REPORT INFORMATION
  Report Type: Report from Study
  Country: CA (occurrence: CA)
  Receive Date: 20180118
  Receipt Date: 20180118
  Transmission Date: 20180509
  Serious: Yes (Hospitalization, Other)
  Sender: FDA-Public Use
  Company Number: CA-ROCHE-1992917

PATIENT
  Age: 81 Year
  Sex: Female
  Weight: 90 kg

DRUGS (17)
  1. ACTEMRA [Suspect]
     Active Substance: TOCILIZUMAB
     Indication: RHEUMATOID ARTHRITIS
     Route: 042
     Dates: start: 20110110
  2. ATENOLOL. [Concomitant]
     Active Substance: ATENOLOL
  3. LASIX [Concomitant]
     Active Substance: FUROSEMIDE
     Route: 065
  4. RESOTRAN [Concomitant]
     Active Substance: PRUCALOPRIDE SUCCINATE
  5. SERC (CANADA) [Concomitant]
  6. CORTISONE [Concomitant]
     Active Substance: CORTISONE\HYDROCORTISONE
     Route: 065
  7. AMITRIPTYLINE [Concomitant]
     Active Substance: AMITRIPTYLINE
  8. ZOPICLONE [Concomitant]
     Active Substance: ZOPICLONE
  9. FUROSEMIDE. [Concomitant]
     Active Substance: FUROSEMIDE
  10. ACTEMRA [Suspect]
     Active Substance: TOCILIZUMAB
     Route: 042
     Dates: start: 20150224
  11. TRAMADOL. [Concomitant]
     Active Substance: TRAMADOL
  12. PREDNISONE. [Concomitant]
     Active Substance: PREDNISONE
  13. TRIAZIDE [Concomitant]
  14. VITAMIN B12 [Concomitant]
     Active Substance: CYANOCOBALAMIN
  15. PANTOLOC [Concomitant]
     Active Substance: PANTOPRAZOLE SODIUM
  16. CONSTELLA [Concomitant]
     Active Substance: LINACLOTIDE
     Indication: IRRITABLE BOWEL SYNDROME
     Route: 065
     Dates: start: 201406
  17. VITAMIN B6 [Concomitant]
     Active Substance: PYRIDOXINE HYDROCHLORIDE

REACTIONS (13)
  - Road traffic accident [Unknown]
  - Dyspnoea [Not Recovered/Not Resolved]
  - Contusion [Not Recovered/Not Resolved]
  - Eye swelling [Not Recovered/Not Resolved]
  - Eye infection [Unknown]
  - Muscle spasms [Unknown]
  - Lenticular opacities [Unknown]
  - Urinary tract infection [Not Recovered/Not Resolved]
  - Nausea [Unknown]
  - Carpal tunnel syndrome [Not Recovered/Not Resolved]
  - Headache [Unknown]
  - Cystitis [Recovered/Resolved]
  - Dyspnoea [Not Recovered/Not Resolved]

NARRATIVE: CASE EVENT DATE: 2016
